FAERS Safety Report 11012815 (Version 2)
Quarter: 2015Q2

REPORT INFORMATION
  Report Type: Spontaneous
  Country: US (occurrence: US)
  Receive Date: 20150411
  Receipt Date: 20150525
  Transmission Date: 20150821
  Serious: Yes (Other)
  Sender: FDA-Public Use
  Company Number: US-JNJFOC-20130203117

PATIENT
  Age: 27 Year
  Sex: Female
  Weight: 64.41 kg

DRUGS (2)
  1. REMICADE [Suspect]
     Active Substance: INFLIXIMAB
     Indication: CROHN^S DISEASE
     Dosage: DOSE: 7.5 (UNITS UNSPECIFIED)
     Route: 042
     Dates: start: 201012
  2. PENTASA [Concomitant]
     Active Substance: MESALAMINE
     Indication: CROHN^S DISEASE
     Route: 065
     Dates: start: 2003

REACTIONS (1)
  - Exposure to communicable disease [Not Recovered/Not Resolved]

NARRATIVE: CASE EVENT DATE: 20121224
